FAERS Safety Report 8152640-4 (Version None)
Quarter: 2012Q1

REPORT INFORMATION
  Report Type: 
  Country: None (occurrence: None)
  Receive Date: 20120221
  Receipt Date: 20120211
  Transmission Date: 20120608
  Serious: Yes (Hospitalization, Other)
  Sender: FDA-Public Use
  Company Number: US-JNJFOC-20110407053

PATIENT
  Sex: Male

DRUGS (18)
  1. METFORMIN HCL [Concomitant]
     Indication: DIABETES MELLITUS
     Route: 048
     Dates: start: 20080805
  2. PENICILLIN [Concomitant]
     Indication: TOOTH INFECTION
     Route: 048
     Dates: start: 20101101
  3. CORTISONE ACETATE [Concomitant]
     Indication: ARTHRALGIA
     Route: 065
     Dates: start: 20110301, end: 20110301
  4. ABIRATERONE ACETATE [Suspect]
     Indication: PROSTATE CANCER METASTATIC
     Route: 048
     Dates: start: 20101105, end: 20110322
  5. IBUPROFEN [Concomitant]
     Indication: PAIN
     Route: 048
     Dates: start: 20080909
  6. LEUPROLIDE ACETATE [Concomitant]
     Indication: ANTIANDROGEN THERAPY
     Route: 048
     Dates: start: 20090501
  7. SIMVASTATIN [Concomitant]
     Indication: HYPERCHOLESTEROLAEMIA
     Route: 048
     Dates: start: 20070626
  8. PERCODAN-DEMI [Concomitant]
     Indication: CANCER PAIN
     Route: 048
     Dates: start: 20101001
  9. BENAZEPRIL HYDROCHLORIDE [Concomitant]
     Indication: HYPERTENSION
     Route: 048
     Dates: start: 20101105
  10. AMLODIPINE BESYLATE [Concomitant]
     Indication: HYPERTENSION
     Route: 048
     Dates: start: 20110329
  11. ABIRATERONE ACETATE [Suspect]
     Route: 048
     Dates: start: 20110405, end: 20110412
  12. ASPIRIN [Concomitant]
     Indication: CARDIAC DISORDER
     Route: 048
     Dates: start: 20080805
  13. PREDNISONE TAB [Suspect]
     Indication: PROSTATE CANCER METASTATIC
     Route: 048
     Dates: start: 20101105
  14. ACETAMINOPHEN [Concomitant]
     Indication: CANCER PAIN
     Route: 048
     Dates: start: 20100308
  15. NAPROXEN (ALEVE) [Concomitant]
     Indication: CANCER PAIN
     Route: 048
     Dates: start: 20100504
  16. TEMSIROLIMUS [Suspect]
     Route: 048
     Dates: start: 20090501
  17. ZOLEDRONIC ACID [Concomitant]
     Indication: METASTASES TO BONE
     Route: 042
     Dates: start: 20070511
  18. AMLODIPINE BESYLATE AND BENAZEPRIL HCL [Concomitant]
     Indication: HYPERTENSION
     Route: 048
     Dates: start: 20110301

REACTIONS (2)
  - PLEURAL EFFUSION [None]
  - MALIGNANT PLEURAL EFFUSION [None]
